FAERS Safety Report 22335318 (Version 5)
Quarter: 2023Q4

REPORT INFORMATION
  Report Type: Spontaneous
  Country: US (occurrence: US)
  Receive Date: 20230518
  Receipt Date: 20231006
  Transmission Date: 20240110
  Serious: No
  Sender: FDA-Public Use
  Company Number: US-BRISTOL-MYERS SQUIBB COMPANY-2023-069528

PATIENT
  Age: 67 Year
  Sex: Female
  Weight: 71.67 kg

DRUGS (2)
  1. POMALYST [Suspect]
     Active Substance: POMALIDOMIDE
     Indication: Plasma cell myeloma
     Dosage: FREQUENCY-3WKSON,1WKOFF
     Route: 048
  2. POMALYST [Suspect]
     Active Substance: POMALIDOMIDE
     Route: 048
     Dates: start: 20230421

REACTIONS (13)
  - Flatulence [Not Recovered/Not Resolved]
  - Skin burning sensation [Not Recovered/Not Resolved]
  - Tremor [Not Recovered/Not Resolved]
  - Fatigue [Not Recovered/Not Resolved]
  - Disturbance in attention [Unknown]
  - Nausea [Unknown]
  - Decreased appetite [Unknown]
  - Pruritus [Unknown]
  - Vasodilatation [Unknown]
  - Ear disorder [Recovered/Resolved]
  - Epigastric discomfort [Recovered/Resolved]
  - Bronchitis [Not Recovered/Not Resolved]
  - Infection [Unknown]

NARRATIVE: CASE EVENT DATE: 20230911
